FAERS Safety Report 10641101 (Version 1)
Quarter: 2014Q4

REPORT INFORMATION
  Report Type: Spontaneous
  Country: US (occurrence: US)
  Receive Date: 20141209
  Receipt Date: 20141209
  Transmission Date: 20150529
  Serious: Yes (Other)
  Sender: FDA-Public Use
  Company Number: US-ACTAVIS-2014-26268

PATIENT
  Age: 67 Year
  Sex: Male

DRUGS (4)
  1. FLUOROURACIL 5 FU [Suspect]
     Active Substance: FLUOROURACIL
     Dosage: 1200 MG/M2, TOTAL, OVER 46HOURS
     Route: 042
  2. FLUOROURACIL 5 FU [Suspect]
     Active Substance: FLUOROURACIL
     Indication: COLORECTAL CANCER METASTATIC
     Dosage: 200 MG/M2, SINGLE, WITH A 50% DOSE REDUCTION
     Route: 040
  3. LEUCOVORINA [Concomitant]
     Indication: COLORECTAL CANCER METASTATIC
     Dosage: UNK
     Route: 065
  4. ELOXATIN [Suspect]
     Active Substance: OXALIPLATIN
     Indication: COLORECTAL CANCER METASTATIC
     Dosage: UNK, 15% DOSE REDUCTION EVERY 2 WEEKS, TOTAL OF 21 CYCLES
     Route: 042

REACTIONS (3)
  - Splenomegaly [Unknown]
  - Hepatic cirrhosis [Unknown]
  - Stomatitis [Unknown]
